FAERS Safety Report 4622565-7 (Version None)
Quarter: 2005Q1

REPORT INFORMATION
  Report Type: 
  Country: None (occurrence: None)
  Receive Date: 20050317
  Receipt Date: 20040727
  Transmission Date: 20050727
  Serious: Yes (Other)
  Sender: FDA-Public Use
  Company Number: PHEH2004US08115

PATIENT
  Age: 43 Year
  Sex: Female

DRUGS (5)
  1. TRILEPTAL [Suspect]
     Indication: CONVULSION
     Dosage: SEE IMAGE
     Route: 048
     Dates: start: 20040401
  2. TRILEPTAL [Suspect]
     Indication: CONVULSION
     Dosage: SEE IMAGE
     Route: 048
     Dates: start: 20040726
  3. KLONOPIN [Concomitant]
  4. DILANTIN [Concomitant]
  5. SUMATRIPTAN (SUMATRIPTAN) [Concomitant]

REACTIONS (3)
  - HALLUCINATION, TACTILE [None]
  - INSOMNIA [None]
  - SENSATION OF FOREIGN BODY [None]
